FAERS Safety Report 12190256 (Version 7)
Quarter: 2016Q3

REPORT INFORMATION
  Report Type: Report from Study
  Country: US (occurrence: US)
  Receive Date: 20160318
  Receipt Date: 20160707
  Transmission Date: 20161109
  Serious: Yes (Other)
  Sender: FDA-Public Use
  Company Number: US-BAYER-2016-026100

PATIENT
  Age: 80 Year
  Sex: Male
  Weight: 80.73 kg

DRUGS (3)
  1. NEXAVAR [Suspect]
     Active Substance: SORAFENIB
     Indication: HEPATOCELLULAR CARCINOMA
     Dosage: UNK
     Route: 048
     Dates: start: 201604
  2. NEXAVAR [Suspect]
     Active Substance: SORAFENIB
     Indication: HEPATOCELLULAR CARCINOMA
     Dosage: 200 MG, BID
     Route: 048
  3. NEXAVAR [Suspect]
     Active Substance: SORAFENIB
     Indication: HEPATOCELLULAR CARCINOMA
     Dosage: 200 MG, BID
     Route: 048
     Dates: start: 20160201, end: 20160317

REACTIONS (19)
  - Blood pressure increased [None]
  - Vomiting [None]
  - Abdominal pain upper [Recovered/Resolved]
  - Urinary incontinence [None]
  - Decreased appetite [None]
  - Dysphonia [None]
  - Arteriogram [None]
  - Brachytherapy to liver [None]
  - Asthenia [None]
  - Rash [Recovered/Resolved]
  - Diarrhoea [None]
  - Abnormal loss of weight [Recovered/Resolved]
  - Blood pressure increased [Recovered/Resolved]
  - Vessel puncture site swelling [None]
  - Weight decreased [Recovered/Resolved]
  - Fall [None]
  - Diarrhoea [None]
  - Liver function test abnormal [Recovering/Resolving]
  - Blister [None]

NARRATIVE: CASE EVENT DATE: 20160205
